FAERS Safety Report 17909940 (Version 2)
Quarter: 2020Q3

REPORT INFORMATION
  Report Type: Spontaneous
  Country: US (occurrence: US)
  Receive Date: 20200617
  Receipt Date: 20200704
  Transmission Date: 20201103
  Serious: Yes (Life-Threatening, Hospitalization)
  Sender: FDA-Public Use
  Company Number: US-TEVA-2020-US-1510443

PATIENT
  Age: 55 Year
  Sex: Male

DRUGS (1)
  1. OXYCODONE [Suspect]
     Active Substance: OXYCODONE
     Indication: BACK PAIN
     Dosage: ADMINISTERED 24 TABLETS OVER 48?HOUR PERIOD
     Route: 048

REACTIONS (9)
  - Hypotension [Recovering/Resolving]
  - Myelopathy [Recovering/Resolving]
  - Unresponsive to stimuli [Recovering/Resolving]
  - Myelitis transverse [Recovering/Resolving]
  - Acute respiratory failure [Recovering/Resolving]
  - Shock [Recovering/Resolving]
  - Multiple organ dysfunction syndrome [Recovering/Resolving]
  - Accidental overdose [Unknown]
  - Spinal cord ischaemia [Recovering/Resolving]
